FAERS Safety Report 7651702-5 (Version None)
Quarter: 2011Q3

REPORT INFORMATION
  Report Type: 
  Country: None (occurrence: None)
  Receive Date: 20110802
  Receipt Date: 20110718
  Transmission Date: 20111222
  Serious: Yes (Other)
  Sender: FDA-Public Use
  Company Number: US-ARROW GEN-2011-11494

PATIENT
  Age: 61 Year
  Sex: Male

DRUGS (2)
  1. CABERGOLINE [Suspect]
     Indication: ADENOMA BENIGN
     Dosage: UNK
  2. BROMOCRIPTINE MESYLATE [Suspect]
     Indication: VISUAL FIELD DEFECT
     Dosage: UNK

REACTIONS (4)
  - MARITAL PROBLEM [None]
  - COMPULSIVE SEXUAL BEHAVIOUR [None]
  - HYPERSEXUALITY [None]
  - DRUG INEFFECTIVE [None]
